FAERS Safety Report 8567633-2 (Version None)
Quarter: 2012Q3

REPORT INFORMATION
  Report Type: 
  Country: None (occurrence: None)
  Receive Date: 20120803
  Receipt Date: 20120727
  Transmission Date: 20120928
  Serious: Yes (Hospitalization, Other)
  Sender: FDA-Public Use
  Company Number: DE-UCBSA-057270

PATIENT
  Age: 65 Year
  Sex: Female
  Weight: 69 kg

DRUGS (18)
  1. STALEVO 100 [Concomitant]
     Indication: PARKINSON'S DISEASE
     Dosage: 100/25/200 MG
     Dates: start: 20111221
  2. NEUPRO [Suspect]
     Route: 062
     Dates: start: 20101120, end: 20101126
  3. ERGOCALCIFEROL [Concomitant]
     Indication: OSTEOPOROSIS
     Dates: start: 20080101
  4. CALCIUM D3 [Concomitant]
     Indication: OSTEOPOROSIS
     Dates: start: 20120101
  5. NEUPRO [Suspect]
     Route: 062
     Dates: start: 20110316, end: 20110628
  6. PK MERZ [Concomitant]
     Indication: PARKINSON'S DISEASE
     Dates: start: 20101119
  7. NEUPRO [Suspect]
     Indication: PARKINSON'S DISEASE
     Route: 062
     Dates: start: 20110101
  8. NEUPRO [Suspect]
     Route: 062
     Dates: start: 20110629, end: 20110920
  9. COSOPT [Concomitant]
     Indication: GLAUCOMA
     Dosage: 20/5 MG, DROPS
     Dates: start: 20060101
  10. NEUPRO [Suspect]
     Route: 062
     Dates: start: 20110921, end: 20110101
  11. LEVOCOMP [Concomitant]
     Indication: PARKINSON'S DISEASE
     Dosage: 100/25 MG
     Dates: start: 20101026, end: 20111220
  12. LEVOCOMP RETARD [Concomitant]
     Indication: PARKINSON'S DISEASE
     Dosage: 100/25 MG
     Dates: start: 20101026
  13. PK MERZ [Concomitant]
     Dates: start: 20101116, end: 20101118
  14. NEUPRO [Suspect]
     Route: 062
     Dates: start: 20101127, end: 20110315
  15. ALENDRON [Concomitant]
     Indication: OSTEOPOROSIS
     Dosage: 70 OTHER MICROGRAMS
     Dates: start: 20080101
  16. CALCIMAGON D3 [Concomitant]
     Indication: OSTEOPOROSIS
     Dosage: 1250/10 OTHER MICROGRAMS
     Dates: start: 20080101, end: 20120101
  17. LEVOCOMP RETARD [Concomitant]
     Dosage: 100/25 MG
     Dates: end: 20101025
  18. MADOPAR LT [Concomitant]
     Indication: PARKINSON'S DISEASE
     Dates: start: 20101113

REACTIONS (1)
  - BREAST CANCER [None]
